FAERS Safety Report 19408184 (Version 1)
Quarter: 2021Q2

REPORT INFORMATION
  Report Type: Report from Study
  Country: CA (occurrence: CA)
  Receive Date: 20210611
  Receipt Date: 20210611
  Transmission Date: 20210717
  Serious: Yes (Other)
  Sender: FDA-Public Use
  Company Number: NVSC2021CA081535

PATIENT
  Sex: Male

DRUGS (6)
  1. RIXIMYO [Suspect]
     Active Substance: RITUXIMAB
     Indication: RELAPSING-REMITTING MULTIPLE SCLEROSIS
     Dosage: 1000 MG, Q2W X 2 DOSES (INFUSE AT MIN OF 4.25H)
     Route: 042
  2. ACETAMINOPHEN (PARACETAMOL) [Suspect]
     Active Substance: ACETAMINOPHEN
     Indication: PREMEDICATION
     Dosage: 650 MG (30 MINS PRE?INFUSION)
     Route: 048
  3. METHYLPREDNISOLONE. [Suspect]
     Active Substance: METHYLPREDNISOLONE
     Indication: PREMEDICATION
     Dosage: 100 MG (30 MIN PRE?INFUSION)
     Route: 042
  4. DIPHENHYDRAMINE. [Suspect]
     Active Substance: DIPHENHYDRAMINE
     Indication: PREMEDICATION
     Dosage: 50 MG (30 MIN PRE?INFUSION)
     Route: 048
  5. RIXIMYO [Suspect]
     Active Substance: RITUXIMAB
     Dosage: 1000 MG Q6MONTHS (INFUSE AT MIN OF 3.25H)
     Route: 042
  6. RIXIMYO [Suspect]
     Active Substance: RITUXIMAB
     Dosage: 1000 MG
     Route: 042
     Dates: start: 20210330

REACTIONS (2)
  - Device dislocation [Unknown]
  - Off label use [Unknown]
